FAERS Safety Report 5441839-3 (Version None)
Quarter: 2007Q3

REPORT INFORMATION
  Report Type: 
  Country: None (occurrence: None)
  Receive Date: 20070904
  Receipt Date: 20070824
  Transmission Date: 20080115
  Serious: Yes (Disabling)
  Sender: FDA-Public Use
  Company Number: GB-ELI_LILLY_AND_COMPANY-GB200708005443

PATIENT
  Age: 56 Year
  Sex: Female

DRUGS (12)
  1. FLUOXETINE [Suspect]
     Indication: DEPRESSION
     Dosage: 40 MG, DAILY (1/D)
     Route: 048
     Dates: start: 20010510
  2. CODEINE PHOSPHATE AND ACETAMINOPHEN [Concomitant]
     Indication: ARTHRALGIA
     Dosage: 2 D/F, 4/D
     Route: 048
     Dates: start: 20011112
  3. OXYCONTIN [Interacting]
     Indication: POSTOPERATIVE ANALGESIA
     Dosage: 20 MG, 2/D
     Dates: start: 20070412
  4. OXYCONTIN [Interacting]
     Dosage: 40 MG, 2/D
     Route: 048
     Dates: end: 20070630
  5. OXYCONTIN [Interacting]
     Dosage: 80 MG, 2/D
     Route: 048
  6. TRAMADOL HCL [Concomitant]
     Indication: POSTOPERATIVE ANALGESIA
     Dosage: 100 MG, DAILY (1/D)
     Route: 048
     Dates: start: 20070412, end: 20070430
  7. AMLODIPINE [Concomitant]
     Dates: start: 20060118
  8. BENDROFLUMETHIAZIDE [Concomitant]
     Dates: start: 20040707
  9. DICLOFENAC [Concomitant]
  10. LANSOPRAZOLE [Concomitant]
     Dates: start: 20000203
  11. RAMIPRIL [Concomitant]
     Dates: start: 20040803
  12. SIMVASTATIN [Concomitant]
     Dates: start: 20060605

REACTIONS (3)
  - DRUG INTERACTION [None]
  - HALLUCINATION [None]
  - MYOCLONUS [None]
